FAERS Safety Report 9777978 (Version 1)
Quarter: 2013Q4

REPORT INFORMATION
  Report Type: Report from Study
  Country: AR (occurrence: AR)
  Receive Date: 20131223
  Receipt Date: 20131223
  Transmission Date: 20140711
  Serious: Yes (Other)
  Sender: FDA-Public Use
  Company Number: AR-ROCHE-1323727

PATIENT
  Sex: Female

DRUGS (1)
  1. RANIBIZUMAB [Suspect]
     Indication: MACULOPATHY
     Dosage: 1 AMPOULE PER MONTH
     Route: 050

REACTIONS (3)
  - Neoplasm [Unknown]
  - Gastrointestinal disorder [Not Recovered/Not Resolved]
  - Ulcer [Unknown]
